FAERS Safety Report 8018897-5 (Version None)
Quarter: 2012Q1

REPORT INFORMATION
  Report Type: 
  Country: None (occurrence: None)
  Receive Date: 20120103
  Receipt Date: 20111229
  Transmission Date: 20120608
  Serious: Yes (Life-Threatening)
  Sender: FDA-Public Use
  Company Number: IT-PFIZER INC-2011315651

PATIENT
  Age: 74 Year
  Sex: Female

DRUGS (3)
  1. ZOFRAN [Concomitant]
  2. DEXAMETHASONE SODIUM PHOSPHATE [Concomitant]
  3. CARBOPLATIN [Suspect]
     Indication: OVARIAN CANCER
     Dosage: 435 MG, TOTAL DOSE
     Route: 042
     Dates: start: 20111223, end: 20111223

REACTIONS (2)
  - DYSPNOEA [None]
  - PRURITUS [None]
